FAERS Safety Report 21423808 (Version 8)
Quarter: 2022Q4

REPORT INFORMATION
  Report Type: Spontaneous
  Country: DE (occurrence: DE)
  Receive Date: 20221007
  Receipt Date: 20221230
  Transmission Date: 20230112
  Serious: Yes (Other)
  Sender: FDA-Public Use
  Company Number: DE-NOVARTISPH-NVSC2022DE215549

PATIENT
  Age: 29 Year
  Sex: Male

DRUGS (20)
  1. OXYCODONE [Suspect]
     Active Substance: OXYCODONE
     Indication: Analgesic therapy
     Dosage: 100 MG, Q8H (30-30-40 MG)
     Route: 048
  2. OXYCODONE [Suspect]
     Active Substance: OXYCODONE
     Dosage: UNK (ORAL OPIOID THERAPY WITH PROLONGED-RELEASE OXYCODONE)
     Route: 048
  3. MORPHINE [Suspect]
     Active Substance: MORPHINE
     Indication: Pain
     Dosage: ORAL OPIOID THERAPY/ 10 MG OF MORPHINE REQUIRED BETWEEN SIX AND EIGHT TIMES DAILY
     Route: 048
  4. DICLOFENAC [Suspect]
     Active Substance: DICLOFENAC
     Indication: Bone pain
     Dosage: UNK (NON-STEROIDAL ANTI-INFLAMMATORY DRUG DICLOFENAC)
     Route: 065
  5. DICLOFENAC [Suspect]
     Active Substance: DICLOFENAC
     Indication: Pain
  6. IBUPROFEN [Suspect]
     Active Substance: IBUPROFEN
     Indication: Bone pain
     Dosage: THERAPY WITH IBUPROFEN IN UNKNOWN DOSAGE WHENEVER AFFLICTED WITH BONE
     Route: 065
     Dates: start: 2016
  7. PREGABALIN [Suspect]
     Active Substance: PREGABALIN
     Indication: Pain
     Dosage: 300 MG, QD (150 MG OF PREGABALIN IN THE MORNING AND IN THE EVENING)
     Route: 065
  8. PREGABALIN [Suspect]
     Active Substance: PREGABALIN
     Indication: Analgesic therapy
     Dosage: 50 MG, Q8H THREE TIMES A DAY; 50-50-150 MG)
     Route: 065
     Dates: end: 2019
  9. PREGABALIN [Suspect]
     Active Substance: PREGABALIN
     Dosage: 150 MG, QD
     Route: 065
  10. ZOLEDRONIC ACID [Suspect]
     Active Substance: ZOLEDRONIC ACID
     Indication: Pathological fracture
     Dosage: ZOLEDRONIC ACID I.V. EVERY FOUR WEEKS
     Route: 042
  11. ZOLEDRONIC ACID [Suspect]
     Active Substance: ZOLEDRONIC ACID
     Indication: Pain
     Dosage: UNK
     Route: 065
  12. ZOLEDRONIC ACID [Suspect]
     Active Substance: ZOLEDRONIC ACID
     Indication: Analgesic therapy
  13. LENALIDOMIDE [Suspect]
     Active Substance: LENALIDOMIDE
     Indication: Immunomodulatory therapy
     Dosage: 300 MG, QD
     Route: 065
  14. AMITRIPTYLINE [Suspect]
     Active Substance: AMITRIPTYLINE
     Indication: Pain
     Dosage: 25 MG AMITRIPTYLINE AT NIGHT
     Route: 065
  15. HYDROMORPHONE [Suspect]
     Active Substance: HYDROMORPHONE
     Indication: Pain
     Dosage: 16 MG, Q24H (16 MG HYDROMORPHONE IN A 24-HOUR GALENIC/ EVERY 24 HOURS
     Route: 065
     Dates: start: 2017
  16. .DELTA.8-TETRAHYDROCANNABINOL\HERBALS [Suspect]
     Active Substance: .DELTA.8-TETRAHYDROCANNABINOL\HERBALS
     Indication: Pain
     Dosage: 2.5 MG, QD (A DAILY DOSE OF 2.5-2.5-7.5 MG THC 10 ADMINISTERED)
     Route: 048
  17. .DELTA.8-TETRAHYDROCANNABINOL\HERBALS [Suspect]
     Active Substance: .DELTA.8-TETRAHYDROCANNABINOL\HERBALS
     Dosage: UNK (DAILY DOSE OF 2.5-2.5-7.5 MG THC 10 ADMINISTERED ORALLY)
     Route: 048
  18. AMBROXOL [Suspect]
     Active Substance: AMBROXOL
     Indication: Pain
     Dosage: UNK (CREAM CONTAINING 20% AMBROXOL) CREAM CONTAINING 20 PERCENT AMBROXOL)
     Route: 065
     Dates: end: 2019
  19. AMBROXOL [Suspect]
     Active Substance: AMBROXOL
     Indication: Arthralgia
  20. VITAMIN D [Concomitant]
     Active Substance: VITAMIN D NOS
     Indication: Product used for unknown indication
     Dosage: 2000 IU, QD
     Route: 065

REACTIONS (9)
  - Neoplasm progression [Not Recovered/Not Resolved]
  - Metastasis [Unknown]
  - Sleep disorder [Recovered/Resolved]
  - Depression [Recovered/Resolved]
  - Decreased appetite [Recovered/Resolved]
  - Condition aggravated [Recovered/Resolved]
  - Fatigue [Not Recovered/Not Resolved]
  - Somnolence [Recovered/Resolved]
  - Drug ineffective [Unknown]

NARRATIVE: CASE EVENT DATE: 20170101
